FAERS Safety Report 10915433 (Version 1)
Quarter: 2015Q1

REPORT INFORMATION
  Report Type: Spontaneous
  Country: US (occurrence: None)
  Receive Date: 20150311
  Receipt Date: 20150311
  Transmission Date: 20150721
  Serious: Yes (Hospitalization)
  Sender: FDA-Public Use
  Company Number: None

PATIENT
  Age: 69 Year
  Sex: Female
  Weight: 94.35 kg

DRUGS (1)
  1. ATORVASTATIN [Suspect]
     Active Substance: ATORVASTATIN
     Indication: BLOOD CHOLESTEROL INCREASED

REACTIONS (12)
  - Headache [None]
  - Back pain [None]
  - Epistaxis [None]
  - Diarrhoea [None]
  - Amnesia [None]
  - Decreased appetite [None]
  - Pain [None]
  - Nausea [None]
  - Fatigue [None]
  - Urinary tract disorder [None]
  - Abdominal pain upper [None]
  - Disorientation [None]

NARRATIVE: CASE EVENT DATE: 20150226
